FAERS Safety Report 23597074 (Version 1)
Quarter: 2024Q1

REPORT INFORMATION
  Report Type: Spontaneous
  Country: CA (occurrence: CA)
  Receive Date: 20240305
  Receipt Date: 20240305
  Transmission Date: 20240410
  Serious: Yes (Hospitalization, Other)
  Sender: FDA-Public Use
  Company Number: CA-BAXTER-2024BAX013935

PATIENT
  Age: 74 Year
  Sex: Female
  Weight: 54 kg

DRUGS (11)
  1. IFOSFAMIDE [Suspect]
     Active Substance: IFOSFAMIDE
     Indication: Lymphoma
     Dosage: UNK
     Route: 065
  2. MESNA [Suspect]
     Active Substance: MESNA
     Indication: Lymphoma
     Dosage: UNK, DOSAGE FORM: NOT SPECIFIED
     Route: 065
  3. CARBOPLATIN [Suspect]
     Active Substance: CARBOPLATIN
     Indication: Lymphoma
     Dosage: UNK, DOSAGE FORM: SOLUTION INTRAVENOUS
     Route: 065
  4. CISPLATIN [Suspect]
     Active Substance: CISPLATIN
     Indication: Lymphoma
     Dosage: UNK
     Route: 065
  5. DEXAMETHASONE [Suspect]
     Active Substance: DEXAMETHASONE
     Indication: Lymphoma
     Dosage: UNK, DOSAGE FORM: SOLUTION OPHTHALMIC
     Route: 065
  6. ETOPOSIDE [Suspect]
     Active Substance: ETOPOSIDE
     Indication: Lymphoma
     Dosage: UNK, DOSAGE FORM: UNKNOWN
     Route: 065
  7. ETOPOSIDE [Suspect]
     Active Substance: ETOPOSIDE
     Dosage: UNK, DOSAGE FORM: NOT SPECIFIED
     Route: 065
  8. GEMCITABINE HYDROCHLORIDE [Suspect]
     Active Substance: GEMCITABINE HYDROCHLORIDE
     Indication: Lymphoma
     Dosage: UNK
     Route: 065
  9. MELPHALAN HYDROCHLORIDE [Suspect]
     Active Substance: MELPHALAN\MELPHALAN HYDROCHLORIDE
     Indication: Lymphoma
     Dosage: UNK
     Route: 065
  10. RITUXIMAB [Suspect]
     Active Substance: RITUXIMAB
     Indication: Lymphoma
     Dosage: UNK
     Route: 065
  11. RITUXIMAB [Suspect]
     Active Substance: RITUXIMAB
     Dosage: UNK
     Route: 065

REACTIONS (3)
  - Myelodysplastic syndrome [Not Recovered/Not Resolved]
  - COVID-19 pneumonia [Not Recovered/Not Resolved]
  - Cytopenia [Not Recovered/Not Resolved]
